FAERS Safety Report 5664692-1 (Version None)
Quarter: 2008Q1

REPORT INFORMATION
  Report Type: 
  Country: None (occurrence: None)
  Receive Date: 20080314
  Receipt Date: 20080303
  Transmission Date: 20080703
  Serious: Yes (Hospitalization)
  Sender: FDA-Public Use
  Company Number: JP-NOVOPROD-272890

PATIENT
  Age: 37 Year
  Sex: Female
  Weight: 55.7 kg

DRUGS (2)
  1. NOVORAPID CHU [Suspect]
     Indication: INSULIN-REQUIRING TYPE 2 DIABETES MELLITUS
     Dosage: 14 IU, QD
     Route: 058
     Dates: start: 20061101
  2. NOVOLIN N [Suspect]
     Indication: INSULIN-REQUIRING TYPE 2 DIABETES MELLITUS
     Dosage: 6 IU, QD
     Route: 058
     Dates: start: 20061101

REACTIONS (3)
  - CARDIAC FAILURE [None]
  - NOCTURNAL DYSPNOEA [None]
  - OEDEMA [None]
